FAERS Safety Report 4603051-7 (Version None)
Quarter: 2005Q1

REPORT INFORMATION
  Report Type: 
  Country: None (occurrence: None)
  Receive Date: 20050307
  Receipt Date: 20050218
  Transmission Date: 20050727
  Serious: Yes (Hospitalization)
  Sender: FDA-Public Use
  Company Number: 2005034930

PATIENT
  Age: 81 Year
  Sex: Female

DRUGS (9)
  1. CELEBREX [Suspect]
     Indication: OSTEOARTHRITIS
     Dosage: 200 MG (200 MG, 1 IN 1 D), ORAL
     Route: 048
     Dates: start: 20031001, end: 20040831
  2. ETORICOXIB (ETORICOXIB) [Suspect]
     Indication: OSTEOARTHRITIS
     Dosage: 90 MG (90 MG, 1 IN 1 D), ORAL
     Route: 048
     Dates: start: 20040909, end: 20040929
  3. ETORICOXIB (ETORICOXIB) [Suspect]
     Indication: OSTEOARTHRITIS
     Dosage: 90 MG (90 MG, 1 IN 1 D), ORAL
     Route: 048
     Dates: start: 20041205, end: 20041212
  4. TIMOLOL MALEATE [Concomitant]
  5. EPROSARTAN (EPROSARTAN) [Concomitant]
  6. HEPARIN-FRACTION, SODIUM SALT (HEPARIN-FRACTION, SODIUM SALT) [Concomitant]
  7. DOXAZOSIN MESYLATE [Concomitant]
  8. LANSOPRAZOLE [Concomitant]
  9. LERCANIDIPINE [Concomitant]

REACTIONS (1)
  - AORTIC DISORDER [None]
